FAERS Safety Report 10051412 (Version 2)
Quarter: 2014Q2

REPORT INFORMATION
  Report Type: Spontaneous
  Country: US (occurrence: US)
  Receive Date: 20140401
  Receipt Date: 20140506
  Transmission Date: 20141212
  Serious: No
  Sender: FDA-Public Use
  Company Number: US-PFIZER INC-2014090157

PATIENT
  Age: 49 Year
  Sex: Female
  Weight: 119 kg

DRUGS (4)
  1. GABAPENTIN [Suspect]
     Dosage: UNK
  2. CIPROFLOXACIN HCL [Suspect]
     Dosage: UNK
  3. CLONIDINE [Suspect]
     Dosage: UNK
  4. PRINIVIL [Suspect]
     Dosage: UNK

REACTIONS (1)
  - Drug hypersensitivity [Unknown]
